FAERS Safety Report 11874393 (Version 1)
Quarter: 2015Q4

REPORT INFORMATION
  Report Type: Spontaneous
  Country: US (occurrence: US)
  Receive Date: 20151229
  Receipt Date: 20151229
  Transmission Date: 20160305
  Serious: Yes (Other)
  Sender: FDA-Public Use
  Company Number: US-CIPLA LTD.-2015US09593

PATIENT

DRUGS (5)
  1. PERPHENAZINE. [Suspect]
     Active Substance: PERPHENAZINE
     Route: 065
  2. ZUCLOPENTHIXOL [Suspect]
     Active Substance: ZUCLOPENTHIXOL
     Dosage: UNK
     Route: 065
  3. HALOPERIDOL. [Suspect]
     Active Substance: HALOPERIDOL
     Route: 065
  4. RISPERIDONE. [Suspect]
     Active Substance: RISPERIDONE
     Indication: SCHIZOPHRENIA
     Dosage: UNK
     Route: 048
  5. TEMAZEPAM. [Suspect]
     Active Substance: TEMAZEPAM
     Route: 065

REACTIONS (2)
  - Pre-eclampsia [Unknown]
  - Exposure during pregnancy [Unknown]
